FAERS Safety Report 9887786 (Version 1)
Quarter: 2013Q4

REPORT INFORMATION
  Report Type: Spontaneous
  Country: US (occurrence: None)
  Receive Date: 20131223
  Receipt Date: 20131223
  Transmission Date: 20140711
  Serious: No
  Sender: FDA-Public Use
  Company Number: 217198LEO

PATIENT
  Age: 60 Year
  Sex: Female
  Weight: 190 kg

DRUGS (3)
  1. PICATO (0.05%, GEL) [Suspect]
     Indication: ACTINIC KERATOSIS
     Dosage: 1 IN 1 D
     Route: 061
     Dates: start: 20120408, end: 20120409
  2. PLAVIX (CLOPIDOGREL) [Concomitant]
  3. PAXIL (PAROXETINE HYDROCHLORIDE) [Concomitant]

REACTIONS (11)
  - Pain [None]
  - Erythema [None]
  - Swelling [None]
  - Pruritus [None]
  - Blister [None]
  - Condition aggravated [None]
  - Urticaria [None]
  - Skin exfoliation [None]
  - Drug prescribing error [None]
  - Drug administered at inappropriate site [None]
  - Drug administration error [None]
